FAERS Safety Report 17688734 (Version 3)
Quarter: 2020Q3

REPORT INFORMATION
  Report Type: Report from Study
  Country: US (occurrence: US)
  Receive Date: 20200421
  Receipt Date: 20200714
  Transmission Date: 20201102
  Serious: Yes (Other)
  Sender: FDA-Public Use
  Company Number: US-UCBSA-2020014763

PATIENT
  Sex: Female
  Weight: 63.5 kg

DRUGS (3)
  1. LACOSAMIDE. [Suspect]
     Active Substance: LACOSAMIDE
     Indication: PARTIAL SEIZURES
     Dosage: 50 MG 2 TABLETS IN MORNING AND 3 TABLETS IN EVENING
     Route: 048
     Dates: start: 2013, end: 202006
  2. LACOSAMIDE. [Suspect]
     Active Substance: LACOSAMIDE
     Indication: SEIZURE
     Dosage: 300 MILLIGRAM, 2X/DAY (BID)
     Route: 048
  3. LACOSAMIDE. [Suspect]
     Active Substance: LACOSAMIDE
     Indication: EPILEPSY
     Dosage: 100 MG AM AND 200 G PM
     Route: 048
     Dates: start: 202006

REACTIONS (11)
  - Seizure [Not Recovered/Not Resolved]
  - Agitation [Not Recovered/Not Resolved]
  - Overdose [Unknown]
  - Therapy interrupted [Unknown]
  - Fatigue [Not Recovered/Not Resolved]
  - Off label use [Unknown]
  - Product availability issue [Unknown]
  - Feeling abnormal [Not Recovered/Not Resolved]
  - Intentional product misuse [Unknown]
  - Generalised tonic-clonic seizure [Recovered/Resolved]
  - Dizziness [Not Recovered/Not Resolved]

NARRATIVE: CASE EVENT DATE: 2018
